FAERS Safety Report 7676190-4 (Version None)
Quarter: 2011Q3

REPORT INFORMATION
  Report Type: 
  Country: None (occurrence: None)
  Receive Date: 20110805
  Receipt Date: 20110722
  Transmission Date: 20111222
  Serious: Yes (Hospitalization, Other)
  Sender: FDA-Public Use
  Company Number: 2011P1007925

PATIENT
  Age: 73 Year
  Sex: Female
  Weight: 77.5651 kg

DRUGS (6)
  1. CLONAZEPAM [Suspect]
     Indication: ANXIETY
     Dosage: 0.25 MG;BID PRN;PO
     Route: 048
  2. FENTANYL-12 [Suspect]
     Indication: BACK PAIN
     Dates: start: 20101201, end: 20101201
  3. OXYCODONE/ACETAMINOPHEN [Concomitant]
  4. FENTANYL [Suspect]
     Indication: BACK PAIN
     Dosage: 1 PATCH;Q72H;TDER
     Route: 062
     Dates: start: 20101201
  5. FENTANYL [Suspect]
     Indication: BACK PAIN
     Dosage: 1 PATCH;Q72H;TDER
     Route: 062
     Dates: start: 20101201, end: 20101201
  6. SERTRALINE HYDROCHLORIDE [Concomitant]

REACTIONS (10)
  - FEELING ABNORMAL [None]
  - DRUG INEFFECTIVE [None]
  - NEPHROLITHIASIS [None]
  - PRODUCT SUBSTITUTION ISSUE [None]
  - THERAPY REGIMEN CHANGED [None]
  - BLOOD CHOLESTEROL INCREASED [None]
  - BACK PAIN [None]
  - SOMNOLENCE [None]
  - CONDITION AGGRAVATED [None]
  - HERPES ZOSTER [None]
